FAERS Safety Report 5788111-X (Version None)
Quarter: 2008Q2

REPORT INFORMATION
  Report Type: 
  Country: None (occurrence: None)
  Receive Date: 20080625
  Receipt Date: 20080619
  Transmission Date: 20081010
  Serious: Yes (Life-Threatening, Hospitalization)
  Sender: FDA-Public Use
  Company Number: CH-BOEHRINGER INGELHEIM GMBH, GERMANY-2008-DE-03599SI

PATIENT
  Sex: Female
  Weight: 73 kg

DRUGS (5)
  1. SIFROL [Suspect]
     Indication: RESTLESS LEGS SYNDROME
     Route: 048
     Dates: end: 20080605
  2. EUTHYROX [Concomitant]
  3. DIABIFORMIN [Concomitant]
  4. ALDOZONE [Concomitant]
  5. OXAZEPAM [Concomitant]

REACTIONS (2)
  - HYPONATRAEMIA [None]
  - TREATMENT NONCOMPLIANCE [None]
